FAERS Safety Report 7487205-0 (Version None)
Quarter: 2011Q2

REPORT INFORMATION
  Report Type: 
  Country: None (occurrence: None)
  Receive Date: 20110518
  Receipt Date: 20110505
  Transmission Date: 20111010
  Serious: Yes (Other)
  Sender: FDA-Public Use
  Company Number: US-BAYER-201040975NA

PATIENT
  Age: 30 Year
  Sex: Female

DRUGS (3)
  1. BETASERON [Suspect]
     Dosage: 2 MIU, QOD
     Route: 058
     Dates: start: 20110101, end: 20110115
  2. BETASERON [Suspect]
     Indication: MULTIPLE SCLEROSIS
     Route: 058
     Dates: start: 20090803, end: 20100920
  3. BETASERON [Suspect]
     Dosage: 8 MIU, UNK
     Route: 058
     Dates: start: 20110131

REACTIONS (14)
  - ABDOMINAL PAIN [None]
  - MINERAL SUPPLEMENTATION [None]
  - VOMITING [None]
  - VAGINAL HAEMORRHAGE [None]
  - INJECTION SITE HAEMATOMA [None]
  - INJECTION SITE PRURITUS [None]
  - MULTIPLE SCLEROSIS [None]
  - SENSATION OF HEAVINESS [None]
  - NAUSEA [None]
  - PARAESTHESIA [None]
  - HYPOAESTHESIA [None]
  - NEPHROLITHIASIS [None]
  - CONSTIPATION [None]
  - INJECTION SITE RASH [None]
